FAERS Safety Report 4473111-2 (Version None)
Quarter: 2004Q4

REPORT INFORMATION
  Report Type: 
  Country: None (occurrence: None)
  Receive Date: 20041007
  Receipt Date: 20041007
  Transmission Date: 20050328
  Serious: Yes (Other)
  Sender: FDA-Public Use
  Company Number: None

PATIENT
  Age: 25 Year
  Sex: Female
  Weight: 44.4 kg

DRUGS (2)
  1. VENOFER [Suspect]
     Indication: IRON DEFICIENCY ANAEMIA
     Dosage: 100MG IV
     Route: 042
     Dates: start: 20040921
  2. VENOFER [Suspect]
     Indication: IRON DEFICIENCY ANAEMIA
     Dosage: 100MG IV
     Route: 042
     Dates: start: 20040928

REACTIONS (9)
  - BACK PAIN [None]
  - CHEST PAIN [None]
  - DYSPEPSIA [None]
  - FEELING HOT [None]
  - INFUSION RELATED REACTION [None]
  - MALAISE [None]
  - SENSATION OF FOREIGN BODY [None]
  - THROAT IRRITATION [None]
  - THROAT TIGHTNESS [None]
